FAERS Safety Report 6994017-0 (Version None)
Quarter: 2010Q3

REPORT INFORMATION
  Report Type: 
  Country: None (occurrence: None)
  Receive Date: 20100917
  Receipt Date: 20070821
  Transmission Date: 20110219
  Serious: Yes (Other)
  Sender: FDA-Public Use
  Company Number: US-ASTRAZENECA-2006UW11917

PATIENT
  Age: 9758 Day
  Sex: Female
  Weight: 114.8 kg

DRUGS (19)
  1. SEROQUEL [Suspect]
     Indication: DEPRESSION
     Route: 048
     Dates: start: 19990101
  2. SEROQUEL [Suspect]
     Indication: BIPOLAR DISORDER
     Route: 048
     Dates: start: 19990101
  3. SEROQUEL [Suspect]
     Indication: SCHIZOPHRENIA
     Route: 048
     Dates: start: 19990101
  4. SEROQUEL [Suspect]
     Dosage: 50-600 MG
     Route: 048
     Dates: start: 20040813
  5. SEROQUEL [Suspect]
     Dosage: 50-600 MG
     Route: 048
     Dates: start: 20040813
  6. SEROQUEL [Suspect]
     Dosage: 50-600 MG
     Route: 048
     Dates: start: 20040813
  7. CLOZARIL [Concomitant]
  8. HALDOL [Concomitant]
  9. RISPERDAL [Concomitant]
  10. THORAZINE [Concomitant]
  11. ZYPREXA [Concomitant]
  12. DEPAKOTE [Concomitant]
     Dosage: 250-1000 MG
     Route: 048
     Dates: start: 20040813
  13. HYDROCHLOROTHIAZIDE [Concomitant]
     Route: 048
     Dates: start: 20041112
  14. LEXAPRO [Concomitant]
     Dosage: 10-20 MG
     Route: 048
     Dates: start: 20051107
  15. FUROSEMIDE [Concomitant]
     Route: 048
     Dates: start: 20050831
  16. HYZAAR [Concomitant]
     Dosage: 50-12.5 ONE TIME DAILY
     Route: 048
     Dates: start: 20050718
  17. EQUETRO [Concomitant]
     Route: 048
     Dates: start: 20051011
  18. GLIPIZIDE [Concomitant]
     Route: 048
     Dates: start: 20051011
  19. LAMICTAL [Concomitant]
     Dosage: 25-50 MG
     Route: 048
     Dates: start: 20041123

REACTIONS (4)
  - DIABETES MELLITUS [None]
  - DIABETIC KETOACIDOSIS [None]
  - TARDIVE DYSKINESIA [None]
  - TYPE 2 DIABETES MELLITUS [None]
